FAERS Safety Report 8264964-0 (Version None)
Quarter: 2012Q2

REPORT INFORMATION
  Report Type: 
  Country: None (occurrence: None)
  Receive Date: 20120404
  Receipt Date: 20120402
  Transmission Date: 20120825
  Serious: Yes (Hospitalization, Other)
  Sender: FDA-Public Use
  Company Number: ADR-2010-8649

PATIENT
  Sex: Male

DRUGS (1)
  1. LIORESAL [Suspect]
     Indication: MUSCLE SPASTICITY
     Dosage: UNK MCG, DAILY, INTRATH
     Route: 037

REACTIONS (7)
  - ABNORMAL BEHAVIOUR [None]
  - NERVOUS SYSTEM DISORDER [None]
  - SCAR [None]
  - MEDICAL DEVICE COMPLICATION [None]
  - DEVICE CONNECTION ISSUE [None]
  - DEVICE DISLOCATION [None]
  - INCORRECT ROUTE OF DRUG ADMINISTRATION [None]
